FAERS Safety Report 6684321-8 (Version None)
Quarter: 2010Q2

REPORT INFORMATION
  Report Type: 
  Country: None (occurrence: None)
  Receive Date: 20100416
  Receipt Date: 20100406
  Transmission Date: 20101027
  Serious: Yes (Other)
  Sender: FDA-Public Use
  Company Number: PHEH2010US03170

PATIENT
  Sex: Male

DRUGS (21)
  1. ZOMETA [Suspect]
     Indication: MULTIPLE MYELOMA
     Dosage: 3.5-4 MG
     Route: 042
     Dates: start: 20090428
  2. REVLIMID [Concomitant]
     Indication: MULTIPLE MYELOMA
     Dosage: 21 OUT OF 28 DAYS
     Route: 048
     Dates: start: 20090428
  3. ACYCLOVIR [Concomitant]
     Indication: MULTIPLE MYELOMA
     Dosage: UNK
     Route: 048
  4. ZOCOR [Concomitant]
  5. HYDROCORTISONE [Concomitant]
  6. DEXAMETHASONE [Concomitant]
  7. WARFARIN SODIUM [Concomitant]
  8. ZOLPIDEM [Concomitant]
  9. FEXOFENADINE [Concomitant]
  10. LIDOCAINE [Concomitant]
  11. OXYCODONE [Concomitant]
  12. FISH OIL [Concomitant]
  13. COQ10 [Concomitant]
  14. GLUCOSAMINE [Concomitant]
  15. CHONDROITIN A [Concomitant]
  16. VITAMIN D3 [Concomitant]
  17. LORATADINE [Concomitant]
  18. DIPHENHYDRAMINE HYDROCHLORIDE [Concomitant]
  19. TYLENOL-500 [Concomitant]
  20. ANTACID TAB [Concomitant]
  21. DECADRON [Concomitant]
     Indication: MULTIPLE MYELOMA
     Dosage: WEEKLY
     Route: 048
     Dates: start: 20090428

REACTIONS (2)
  - EXOSTOSIS [None]
  - JAW DISORDER [None]
